FAERS Safety Report 4655756-X (Version None)
Quarter: 2005Q2

REPORT INFORMATION
  Report Type: 
  Country: None (occurrence: None)
  Receive Date: 20050507
  Receipt Date: 20050216
  Transmission Date: 20051028
  Serious: Yes (Hospitalization)
  Sender: FDA-Public Use
  Company Number: US-MERCK-0502USA02323

PATIENT
  Age: 72 Year
  Sex: Male
  Weight: 86 kg

DRUGS (12)
  1. VIOXX [Suspect]
     Indication: BACK PAIN
     Route: 048
     Dates: start: 20020901, end: 20030501
  2. VIOXX [Suspect]
     Indication: SHOULDER PAIN
     Route: 048
     Dates: start: 20020901, end: 20030501
  3. GLIPIZIDE [Concomitant]
     Route: 065
  4. INSULIN [Concomitant]
     Route: 065
  5. COZAAR [Concomitant]
     Route: 065
  6. NORVASC [Concomitant]
     Route: 065
  7. ATENOLOL [Concomitant]
     Route: 065
  8. NIACIN [Concomitant]
     Route: 065
  9. LIPITOR [Concomitant]
     Route: 065
  10. IBUPROFEN [Concomitant]
     Route: 065
  11. DARVOCET-N 100 [Concomitant]
     Route: 065
  12. PLAVIX [Concomitant]
     Route: 065

REACTIONS (6)
  - ACUTE MYOCARDIAL INFARCTION [None]
  - CARDIOMEGALY [None]
  - CORONARY ARTERY RESTENOSIS [None]
  - DEHYDRATION [None]
  - EJECTION FRACTION DECREASED [None]
  - PLEURAL EFFUSION [None]
